FAERS Safety Report 8912852 (Version 3)
Quarter: 2013Q1

REPORT INFORMATION
  Report Type: Spontaneous
  Country: LB (occurrence: LB)
  Receive Date: 20121116
  Receipt Date: 20130208
  Transmission Date: 20140127
  Serious: Yes (Hospitalization)
  Sender: FDA-Public Use
  Company Number: LB-JNJFOC-20121105130

PATIENT
  Age: 32 Year
  Sex: Female
  Weight: 60 kg

DRUGS (2)
  1. REMICADE [Suspect]
     Indication: CROHN^S DISEASE
     Route: 042
     Dates: start: 201211
  2. REMICADE [Suspect]
     Indication: CROHN^S DISEASE
     Dosage: 3 VIALS
     Route: 042

REACTIONS (6)
  - Pleural effusion [Unknown]
  - Ascites [Unknown]
  - Cough [Unknown]
  - Dyspnoea [Unknown]
  - Pyrexia [Unknown]
  - Antinuclear antibody [Not Recovered/Not Resolved]
